FAERS Safety Report 10571237 (Version 1)
Quarter: 2014Q4

REPORT INFORMATION
  Report Type: Spontaneous
  Country: FR (occurrence: FR)
  Receive Date: 20141107
  Receipt Date: 20141107
  Transmission Date: 20150529
  Serious: Yes (Hospitalization, Other)
  Sender: FDA-Public Use
  Company Number: FR-ELI_LILLY_AND_COMPANY-FR201410010138

PATIENT
  Age: 51 Year
  Sex: Male

DRUGS (18)
  1. ALIMTA [Suspect]
     Active Substance: PEMETREXED DISODIUM
     Dosage: 1000 MG, UNKNOWN
     Route: 042
     Dates: start: 20140603
  2. ALIMTA [Suspect]
     Active Substance: PEMETREXED DISODIUM
     Dosage: 990 MG, UNKNOWN
     Route: 042
  3. AVASTIN [Suspect]
     Active Substance: BEVACIZUMAB
     Indication: LUNG ADENOCARCINOMA STAGE IV
     Dosage: 627 MG, UNKNOWN
     Route: 042
     Dates: start: 20140603
  4. CISPLATINE [Suspect]
     Active Substance: CISPLATIN
     Dosage: 75 MG, UNKNOWN
     Route: 065
  5. EUPANTOL [Concomitant]
     Active Substance: PANTOPRAZOLE SODIUM
     Dosage: 40 MG, QD
     Route: 048
  6. BECILAN [Concomitant]
     Active Substance: PYRIDOXINE
     Dosage: 250 MG, UNKNOWN
  7. SERETIDE [Concomitant]
     Active Substance: FLUTICASONE FUROATE\SALMETEROL XINAFOATE
     Route: 055
  8. SPIRIVA [Concomitant]
     Active Substance: TIOTROPIUM BROMIDE MONOHYDRATE
     Route: 055
  9. BEVITINE [Concomitant]
     Active Substance: THIAMINE
     Dosage: 250 MG, UNKNOWN
  10. CISPLATINE [Suspect]
     Active Substance: CISPLATIN
     Dosage: 150 MG, UNKNOWN
     Route: 065
  11. ALIMTA [Suspect]
     Active Substance: PEMETREXED DISODIUM
     Indication: LUNG ADENOCARCINOMA STAGE IV
     Dosage: 995 MG, UNKNOWN
     Route: 042
     Dates: start: 20140512
  12. AIROMIR                            /00139501/ [Concomitant]
     Dosage: 100 UG, UNKNOWN
     Route: 055
  13. ATARAX [Concomitant]
     Active Substance: HYDROXYZINE\HYDROXYZINE HYDROCHLORIDE
     Dosage: 25 MG, UNKNOWN
  14. CISPLATINE [Suspect]
     Active Substance: CISPLATIN
     Dosage: 75 MG, UNKNOWN
     Route: 065
  15. NICORETTE                          /01033301/ [Concomitant]
  16. CARBOPLATIN. [Suspect]
     Active Substance: CARBOPLATIN
     Indication: LUNG ADENOCARCINOMA STAGE IV
     Dosage: UNK
     Route: 042
     Dates: start: 20140731, end: 20140801
  17. LYRICA [Concomitant]
     Active Substance: PREGABALIN
     Dosage: 25 MG, UNKNOWN
  18. CISPLATINE [Suspect]
     Active Substance: CISPLATIN
     Indication: LUNG ADENOCARCINOMA STAGE IV
     Dosage: 74 MG, UNKNOWN
     Route: 065
     Dates: start: 20140512

REACTIONS (7)
  - Pseudomonas infection [Unknown]
  - Lymphopenia [Unknown]
  - Acute kidney injury [Unknown]
  - Thrombocytopenia [Unknown]
  - Off label use [Unknown]
  - Lung infection [Recovered/Resolved]
  - Respiratory distress [Unknown]

NARRATIVE: CASE EVENT DATE: 20140710
